FAERS Safety Report 16509335 (Version 1)
Quarter: 2019Q3

REPORT INFORMATION
  Report Type: Spontaneous
  Country: MX (occurrence: MX)
  Receive Date: 20190701
  Receipt Date: 20190701
  Transmission Date: 20191004
  Serious: Yes (Other)
  Sender: FDA-Public Use
  Company Number: MX-ASTRAZENECA-2019SE94166

PATIENT
  Age: 25069 Day
  Sex: Female
  Weight: 70 kg

DRUGS (8)
  1. HEPA MERZ [Concomitant]
     Indication: GASTROINTESTINAL DISORDER
     Route: 048
     Dates: start: 20130620
  2. BEDOYECTA [Concomitant]
     Indication: SUPPLEMENTATION THERAPY
     Dosage: DAILY
     Route: 048
     Dates: start: 20160620
  3. RELVARE [Concomitant]
     Active Substance: FLUTICASONE FUROATE\VILANTEROL TRIFENATATE
     Indication: BRONCHIAL DISORDER
     Dosage: DAILY
     Route: 048
     Dates: start: 20160620
  4. NEXIUM MUPS [Suspect]
     Active Substance: ESOMEPRAZOLE
     Indication: GASTROINTESTINAL DISORDER
     Route: 048
     Dates: start: 20130620
  5. FUROSEMIDE. [Concomitant]
     Active Substance: FUROSEMIDE
     Indication: INFLAMMATION
     Dosage: DAILY
     Route: 048
     Dates: start: 20190520, end: 20190530
  6. VIVITAR [Concomitant]
     Indication: ILL-DEFINED DISORDER
  7. INDERALICI [Suspect]
     Active Substance: PROPRANOLOL HYDROCHLORIDE
     Indication: GASTROINTESTINAL DISORDER
     Route: 048
     Dates: start: 20130620
  8. REGULAT [Concomitant]
     Indication: GASTROINTESTINAL DISORDER
     Route: 048
     Dates: start: 20130620

REACTIONS (7)
  - Inflammation [Not Recovered/Not Resolved]
  - Bronchial disorder [Not Recovered/Not Resolved]
  - Hepatic cirrhosis [Not Recovered/Not Resolved]
  - Gastric varices [Not Recovered/Not Resolved]
  - Hepatic steatosis [Not Recovered/Not Resolved]
  - Varices oesophageal [Not Recovered/Not Resolved]
  - Off label use [Not Recovered/Not Resolved]

NARRATIVE: CASE EVENT DATE: 20130620
